FAERS Safety Report 5217974-1 (Version None)
Quarter: 2007Q1

REPORT INFORMATION
  Report Type: 
  Country: None (occurrence: None)
  Receive Date: 20061130
  Receipt Date: 20060807
  Transmission Date: 20070707
  Serious: Yes (Other)
  Sender: FDA-Public Use
  Company Number: US200603000139

PATIENT
  Age: 36 Year
  Sex: Female
  Weight: 131.5 kg

DRUGS (1)
  1. ZYPREXA [Suspect]
     Indication: BIPOLAR DISORDER
     Dosage: 30 MG
     Dates: start: 20030101

REACTIONS (3)
  - DIABETES MELLITUS [None]
  - PRESCRIBED OVERDOSE [None]
  - WEIGHT INCREASED [None]
